FAERS Safety Report 6549879-8 (Version None)
Quarter: 2010Q1

REPORT INFORMATION
  Report Type: 
  Country: None (occurrence: None)
  Receive Date: 20100119
  Receipt Date: 20100104
  Transmission Date: 20100710
  Serious: Yes (Other)
  Sender: FDA-Public Use
  Company Number: 2010000010

PATIENT
  Age: 60 Year
  Sex: Female

DRUGS (6)
  1. TARCEVA [Suspect]
     Indication: CHEMOTHERAPY
     Dosage: ORAL
     Route: 048
     Dates: start: 20090528
  2. AVASTIN [Suspect]
     Indication: CHEMOTHERAPY
     Dosage: (1130 MG), INTRAVENOUS
     Route: 042
     Dates: start: 20081124, end: 20090425
  3. CISPLATIN [Suspect]
     Indication: CHEMOTHERAPY
     Dosage: (45 MG), INTRAVENOUS
     Route: 042
     Dates: start: 20081124, end: 20090429
  4. TAXOTERE [Suspect]
     Indication: CHEMOTHERAPY
     Dosage: (145 MG),INTRAVENOUS
     Route: 042
     Dates: start: 20081124, end: 20090424
  5. NEULASTA [Suspect]
     Indication: DRUG USE FOR UNKNOWN INDICATION
     Dosage: (6MG), SUBCUTANEOUS
     Route: 058
     Dates: start: 20081124, end: 20090429
  6. TRANDOLAPRIL [Concomitant]

REACTIONS (3)
  - DILATATION VENTRICULAR [None]
  - EJECTION FRACTION DECREASED [None]
  - HYPOKINESIA [None]
